FAERS Safety Report 15139722 (Version 1)
Quarter: 2018Q3

REPORT INFORMATION
  Report Type: Spontaneous
  Country: US (occurrence: US)
  Receive Date: 20180618
  Receipt Date: 20180618
  Transmission Date: 20181010
  Serious: Yes (Other)
  Sender: FDA-Public Use
  Company Number: None

PATIENT
  Age: 56 Year
  Sex: Male

DRUGS (1)
  1. PROCRIT [Suspect]
     Active Substance: ERYTHROPOIETIN
     Route: 058
     Dates: start: 20180131, end: 20180618

REACTIONS (2)
  - Drug dose omission [None]
  - Product storage error [None]

NARRATIVE: CASE EVENT DATE: 20180608
